FAERS Safety Report 12707828 (Version 1)
Quarter: 2016Q3

REPORT INFORMATION
  Report Type: Report from Study
  Country: BR (occurrence: BR)
  Receive Date: 20160901
  Receipt Date: 20160901
  Transmission Date: 20161109
  Serious: Yes (Other)
  Sender: FDA-Public Use
  Company Number: PHHY2016BR118905

PATIENT
  Sex: Male
  Weight: 66 kg

DRUGS (2)
  1. FORASEQ [Suspect]
     Active Substance: BUDESONIDE\FORMOTEROL FUMARATE
     Dosage: 2 DF, QD
     Route: 065
  2. FORASEQ [Suspect]
     Active Substance: BUDESONIDE\FORMOTEROL FUMARATE
     Indication: ASTHMA
     Dosage: 1 DF, QD
     Route: 055

REACTIONS (6)
  - Drug hypersensitivity [Unknown]
  - Lung infection [Unknown]
  - Asthma [Unknown]
  - Catarrh [Unknown]
  - Bronchiectasis [Unknown]
  - Infection [Unknown]
